FAERS Safety Report 24899724 (Version 1)
Quarter: 2025Q1

REPORT INFORMATION
  Report Type: Spontaneous
  Country: CN (occurrence: CN)
  Receive Date: 20250129
  Receipt Date: 20250129
  Transmission Date: 20250409
  Serious: Yes (Hospitalization)
  Sender: PFIZER
  Company Number: CN-PFIZER INC-PV202500010858

PATIENT
  Age: 70 Year
  Sex: Male
  Weight: 50 kg

DRUGS (1)
  1. VORICONAZOLE [Suspect]
     Active Substance: VORICONAZOLE
     Indication: Pneumonia fungal
     Dosage: 0.2 G, 2X/DAY
     Route: 048
     Dates: start: 20250108, end: 20250110

REACTIONS (6)
  - Rash [Recovering/Resolving]
  - Pain [Recovering/Resolving]
  - Pruritus [Recovering/Resolving]
  - Perioral dermatitis [Recovering/Resolving]
  - Drug hypersensitivity [Recovering/Resolving]
  - Off label use [Unknown]

NARRATIVE: CASE EVENT DATE: 20250110
